FAERS Safety Report 5334057-0 (Version None)
Quarter: 2007Q2

REPORT INFORMATION
  Report Type: 
  Country: None (occurrence: None)
  Receive Date: 20070524
  Receipt Date: 20070515
  Transmission Date: 20071010
  Serious: Yes (Other)
  Sender: FDA-Public Use
  Company Number: US-PFIZER INC-2007040109

PATIENT
  Age: 53 Year
  Sex: Female
  Weight: 95.3 kg

DRUGS (10)
  1. CHANTIX [Suspect]
     Indication: SMOKING CESSATION THERAPY
     Dates: start: 20070507, end: 20070514
  2. PREVACID [Concomitant]
     Indication: GASTRIC DISORDER
  3. SYNTHROID [Concomitant]
     Indication: THYROID DISORDER
  4. MOBIC [Concomitant]
  5. METHOTREXATE [Concomitant]
  6. COLCHICINE [Concomitant]
     Indication: ARTHRITIS
  7. HUMIRA [Concomitant]
  8. FOLIC ACID [Concomitant]
  9. TOPROL-XL [Concomitant]
  10. LOTREL [Concomitant]

REACTIONS (6)
  - FEELING DRUNK [None]
  - HEADACHE [None]
  - LIP SWELLING [None]
  - PARAESTHESIA ORAL [None]
  - SEDATION [None]
  - SOMNOLENCE [None]
